FAERS Safety Report 22871680 (Version 2)
Quarter: 2024Q1

REPORT INFORMATION
  Report Type: Report from Study
  Country: CA (occurrence: CA)
  Receive Date: 20230828
  Receipt Date: 20240218
  Transmission Date: 20240410
  Serious: Yes (Other)
  Sender: FDA-Public Use
  Company Number: CA-JNJFOC-20230852680

PATIENT
  Age: 39 Year
  Sex: Female
  Weight: 100 kg

DRUGS (2)
  1. STELARA [Suspect]
     Active Substance: USTEKINUMAB
     Indication: Crohn^s disease
     Route: 058
     Dates: start: 20220829, end: 20230413
  2. STELARA [Suspect]
     Active Substance: USTEKINUMAB
     Indication: Ankylosing spondylitis

REACTIONS (2)
  - Pyelonephritis [Unknown]
  - Mood swings [Unknown]

NARRATIVE: CASE EVENT DATE: 20220801
